FAERS Safety Report 6547092-1 (Version None)
Quarter: 2010Q1

REPORT INFORMATION
  Report Type: 
  Country: None (occurrence: None)
  Receive Date: 20100122
  Receipt Date: 20100119
  Transmission Date: 20100710
  Serious: Yes (Hospitalization, Disabling)
  Sender: FDA-Public Use
  Company Number: US-MERCK-0805USA02779

PATIENT
  Age: 71 Year
  Sex: Female

DRUGS (14)
  1. FOSAMAX [Suspect]
     Indication: OSTEITIS DEFORMANS
     Route: 048
     Dates: start: 19961001, end: 20060618
  2. FOSAMAX [Suspect]
     Route: 048
     Dates: start: 20060619, end: 20080325
  3. FOSAMAX [Suspect]
     Route: 048
     Dates: end: 19990524
  4. FOSAMAX [Suspect]
     Route: 048
     Dates: start: 20010606
  5. FOSAMAX [Suspect]
     Route: 048
     Dates: start: 20010831
  6. FOSAMAX [Suspect]
     Route: 048
     Dates: start: 19961001, end: 20080304
  7. FOSAMAX [Suspect]
     Route: 048
     Dates: start: 19961001, end: 20080304
  8. FOSAMAX [Suspect]
     Indication: OSTEOPOROSIS
     Route: 048
     Dates: start: 19961001, end: 20060618
  9. FOSAMAX [Suspect]
     Route: 048
     Dates: start: 20060619, end: 20080325
  10. FOSAMAX [Suspect]
     Route: 048
     Dates: end: 19990524
  11. FOSAMAX [Suspect]
     Route: 048
     Dates: start: 20010606
  12. FOSAMAX [Suspect]
     Route: 048
     Dates: start: 20010831
  13. FOSAMAX [Suspect]
     Route: 048
     Dates: start: 19961001, end: 20080304
  14. FOSAMAX [Suspect]
     Route: 048
     Dates: start: 19961001, end: 20080304

REACTIONS (34)
  - ARTHRITIS [None]
  - BLOOD CHOLESTEROL INCREASED [None]
  - BONE DENSITY DECREASED [None]
  - BONE DISORDER [None]
  - CEREBROVASCULAR DISORDER [None]
  - DENTAL CARIES [None]
  - DENTAL NECROSIS [None]
  - EDENTULOUS [None]
  - GINGIVAL BLEEDING [None]
  - GINGIVAL DISORDER [None]
  - GINGIVITIS [None]
  - HAEMORRHAGE [None]
  - HEPATITIS B [None]
  - HYPERCALCAEMIA [None]
  - HYPOAESTHESIA FACIAL [None]
  - IMPAIRED HEALING [None]
  - INAPPROPRIATE SCHEDULE OF DRUG ADMINISTRATION [None]
  - JAW DISORDER [None]
  - LOOSE TOOTH [None]
  - MUSCLE SPASMS [None]
  - MUSCLE STRAIN [None]
  - NERVOUSNESS [None]
  - ORAL INFECTION [None]
  - ORAL TORUS [None]
  - OSTEONECROSIS [None]
  - PAIN [None]
  - PARAESTHESIA [None]
  - PERIODONTAL DISEASE [None]
  - PERIODONTITIS [None]
  - POOR PERSONAL HYGIENE [None]
  - SWELLING [None]
  - TOOTH DISORDER [None]
  - TOOTH LOSS [None]
  - TRISMUS [None]
